FAERS Safety Report 5452183-2 (Version None)
Quarter: 2007Q3

REPORT INFORMATION
  Report Type: 
  Country: None (occurrence: None)
  Receive Date: 20070914
  Receipt Date: 20070912
  Transmission Date: 20080115
  Serious: Yes (Death)
  Sender: FDA-Public Use
  Company Number: PHEH2007US12221

PATIENT
  Age: 86 Year
  Sex: Female

DRUGS (1)
  1. FORADIL [Suspect]

REACTIONS (1)
  - DEATH [None]
